FAERS Safety Report 10055845 (Version 1)
Quarter: 2014Q2

REPORT INFORMATION
  Report Type: Spontaneous
  Country: US (occurrence: US)
  Receive Date: 20140403
  Receipt Date: 20140403
  Transmission Date: 20141212
  Serious: Yes (Hospitalization)
  Sender: FDA-Public Use
  Company Number: US-BAYER-2014-049157

PATIENT
  Age: 25 Year
  Sex: Female
  Weight: 78.01 kg

DRUGS (10)
  1. YAZ [Suspect]
  2. AUGMENTIN [Concomitant]
     Dosage: 875 BID FOR 10 DAYS
  3. DEPO MEDROL [Concomitant]
     Dosage: 80 MG, UNK
     Route: 030
  4. DECADRON [Concomitant]
     Dosage: 8 MG, UNK
     Route: 030
  5. ALBUTEROL [Concomitant]
  6. ALLEGRA [Concomitant]
     Dosage: DAILY
  7. IBUPROFEN [Concomitant]
     Dosage: 600 MG, UNK
  8. CELEBREX [Concomitant]
  9. PAXIL [Concomitant]
  10. MVI [Concomitant]

REACTIONS (2)
  - Pulmonary embolism [None]
  - Deep vein thrombosis [None]
